FAERS Safety Report 7556899-3 (Version None)
Quarter: 2011Q2

REPORT INFORMATION
  Report Type: 
  Country: None (occurrence: None)
  Receive Date: 20110616
  Receipt Date: 20110616
  Transmission Date: 20111010
  Serious: Yes (Hospitalization)
  Sender: FDA-Public Use
  Company Number: None

PATIENT
  Weight: 57.6068 kg

DRUGS (3)
  1. TAXOL [Suspect]
     Indication: BREAST CANCER
     Dosage: 70MG/M2
     Dates: start: 20101111, end: 20110113
  2. RAD001 [Suspect]
     Indication: BREAST CANCER
     Dosage: 5MG
     Dates: start: 20101111, end: 20110118
  3. CISPLATIN [Suspect]
     Indication: BREAST CANCER
     Dosage: 20 MG
     Dates: start: 20101111, end: 20110113

REACTIONS (2)
  - CHOLELITHIASIS [None]
  - CHOLECYSTITIS [None]
